FAERS Safety Report 8279250-2 (Version None)
Quarter: 2012Q2

REPORT INFORMATION
  Report Type: 
  Country: None (occurrence: None)
  Receive Date: 20120412
  Receipt Date: 20111209
  Transmission Date: 20120825
  Serious: No
  Sender: FDA-Public Use
  Company Number: US-ASTRAZENECA-2011SE74597

PATIENT
  Age: 40 Year
  Sex: Female
  Weight: 56.7 kg

DRUGS (4)
  1. NEXIUM [Suspect]
     Indication: GASTROOESOPHAGEAL REFLUX DISEASE
     Route: 048
  2. POTASSIUM PILL [Concomitant]
  3. NEXIUM [Suspect]
     Indication: ULCER HAEMORRHAGE
     Route: 048
  4. MAGNESIUM PILL [Concomitant]

REACTIONS (10)
  - MUSCLE SPASMS [None]
  - HYPERCHLORHYDRIA [None]
  - APHAGIA [None]
  - INFLUENZA LIKE ILLNESS [None]
  - PYREXIA [None]
  - PAIN IN EXTREMITY [None]
  - DRUG DOSE OMISSION [None]
  - VOMITING [None]
  - PAIN [None]
  - HEADACHE [None]
